FAERS Safety Report 23319060 (Version 1)
Quarter: 2023Q4

REPORT INFORMATION
  Report Type: Spontaneous
  Country: US (occurrence: US)
  Receive Date: 20231220
  Receipt Date: 20231220
  Transmission Date: 20240110
  Serious: No
  Sender: FDA-Public Use
  Company Number: US-Accord-298564

PATIENT
  Age: 20 Year
  Sex: Female
  Weight: 72.12 kg

DRUGS (1)
  1. BUPROPION HYDROCHLORIDE [Suspect]
     Active Substance: BUPROPION HYDROCHLORIDE
     Indication: Product used for unknown indication
     Dosage: EXTENDED-RELEASE TABLETS; STRENGTH: 150 MG
     Route: 048

REACTIONS (1)
  - Product odour abnormal [Unknown]
